FAERS Safety Report 16958021 (Version 1)
Quarter: 2019Q4

REPORT INFORMATION
  Report Type: Spontaneous
  Country: US (occurrence: US)
  Receive Date: 20191024
  Receipt Date: 20191024
  Transmission Date: 20200122
  Serious: Yes (Hospitalization)
  Sender: FDA-Public Use
  Company Number: US-JNJFOC-20191031645

PATIENT
  Age: 68 Year
  Sex: Male

DRUGS (2)
  1. INVOKANA [Suspect]
     Active Substance: CANAGLIFLOZIN
     Indication: PRODUCT USED FOR UNKNOWN INDICATION
     Route: 048
  2. INVOKAMET [Suspect]
     Active Substance: CANAGLIFLOZIN\METFORMIN HYDROCHLORIDE
     Indication: PRODUCT USED FOR UNKNOWN INDICATION
     Dosage: 50-1000 MG, WITH MEALS
     Route: 048

REACTIONS (4)
  - Diabetic ketoacidosis [Recovered/Resolved]
  - Cellulitis [Unknown]
  - Foot amputation [Unknown]
  - Gangrene [Unknown]

NARRATIVE: CASE EVENT DATE: 201611
